FAERS Safety Report 8548442-7 (Version None)
Quarter: 2012Q3

REPORT INFORMATION
  Report Type: 
  Country: None (occurrence: None)
  Receive Date: 20120719
  Receipt Date: 20120719
  Transmission Date: 20120928
  Serious: Yes (Other)
  Sender: FDA-Public Use
  Company Number: None

PATIENT
  Sex: Female
  Weight: 67.1324 kg

DRUGS (3)
  1. ESCITALOPRAM [Suspect]
     Indication: ANXIETY
     Dosage: 20 MG QD PO
     Route: 048
     Dates: start: 20120625, end: 20120630
  2. ESCITALOPRAM [Suspect]
     Indication: PANIC DISORDER
     Dosage: 20 MG QD PO
     Route: 048
     Dates: start: 20120625, end: 20120630
  3. ESCITALOPRAM [Suspect]
     Indication: DYSTHYMIC DISORDER
     Dosage: 20 MG QD PO
     Route: 048
     Dates: start: 20120625, end: 20120630

REACTIONS (4)
  - PRODUCT SUBSTITUTION ISSUE [None]
  - GASTROINTESTINAL PAIN [None]
  - GASTROINTESTINAL HAEMORRHAGE [None]
  - NAUSEA [None]
